FAERS Safety Report 13419425 (Version 1)
Quarter: 2017Q2

REPORT INFORMATION
  Report Type: Spontaneous
  Country: NL (occurrence: NL)
  Receive Date: 20170407
  Receipt Date: 20170407
  Transmission Date: 20170830
  Serious: Yes (Other)
  Sender: FDA-Public Use
  Company Number: NL-ABBVIE-17K-114-1935629-00

PATIENT
  Sex: Male

DRUGS (1)
  1. HUMIRA [Suspect]
     Active Substance: ADALIMUMAB
     Indication: PRODUCT USED FOR UNKNOWN INDICATION
     Route: 058

REACTIONS (7)
  - Dermatitis psoriasiform [Unknown]
  - Fatigue [Unknown]
  - Wound [Unknown]
  - Staphylococcal impetigo [Unknown]
  - Malaise [Unknown]
  - Toxic skin eruption [Unknown]
  - Folliculitis [Unknown]
